FAERS Safety Report 11398671 (Version 3)
Quarter: 2016Q1

REPORT INFORMATION
  Report Type: Report from Study
  Country: US (occurrence: US)
  Receive Date: 20150820
  Receipt Date: 20160107
  Transmission Date: 20160525
  Serious: Yes (Other)
  Sender: FDA-Public Use
  Company Number: PHEH2015US004948

PATIENT
  Sex: Female
  Weight: 107.94 kg

DRUGS (3)
  1. GILENYA [Suspect]
     Active Substance: FINGOLIMOD HYDROCHLORIDE
     Indication: MULTIPLE SCLEROSIS
     Dosage: 0.5 MG, QD
     Route: 048
     Dates: start: 20141105, end: 20151209
  2. GABAPENTIN. [Concomitant]
     Active Substance: GABAPENTIN
     Dosage: 600 MG (MORNING, NOON, NIGHT), TID
     Route: 065
  3. GABAPENTIN. [Concomitant]
     Active Substance: GABAPENTIN
     Indication: PRODUCT USED FOR UNKNOWN INDICATION
     Dosage: 300 MG (MORNING, NOON, NIGHT), TID
     Route: 065

REACTIONS (9)
  - Muscle spasms [Recovering/Resolving]
  - Liver disorder [Unknown]
  - Muscular weakness [Recovering/Resolving]
  - Aphasia [Not Recovered/Not Resolved]
  - Hypoaesthesia [Recovering/Resolving]
  - Rheumatoid arthritis [Not Recovered/Not Resolved]
  - Paraesthesia [Recovering/Resolving]
  - Weight decreased [Unknown]
  - Psoriatic arthropathy [Unknown]
